FAERS Safety Report 8606484-7 (Version None)
Quarter: 2012Q3

REPORT INFORMATION
  Report Type: 
  Country: None (occurrence: None)
  Receive Date: 20120820
  Receipt Date: 20120814
  Transmission Date: 20120928
  Serious: Yes (Other)
  Sender: FDA-Public Use
  Company Number: PHHY2012BR071110

PATIENT
  Age: 84 Year
  Sex: Male

DRUGS (4)
  1. EXELON [Suspect]
     Dosage: 4.6 MG/24HS, ONE PATCH
     Route: 062
  2. MEMAMTINE HYDROCHLORIDE [Suspect]
     Indication: DEMENTIA ALZHEIMER'S TYPE
     Dosage: 1 DF, IN THE MORNING AND 1DF AT NIGHT
  3. MIRTAZAPINE [Suspect]
     Indication: DEMENTIA ALZHEIMER'S TYPE
     Dosage: 30MG, ONCE AT NIGHT
  4. EXELON [Suspect]
     Indication: DEMENTIA ALZHEIMER'S TYPE
     Dosage: 4.6 MG/24HS, ONE PATCH
     Route: 062

REACTIONS (1)
  - HAEMATOCHEZIA [None]
